FAERS Safety Report 5352013-3 (Version None)
Quarter: 2007Q2

REPORT INFORMATION
  Report Type: 
  Country: None (occurrence: None)
  Receive Date: 20070611
  Receipt Date: 20070605
  Transmission Date: 20071010
  Serious: Yes (Death, Life-Threatening)
  Sender: FDA-Public Use
  Company Number: PHBS2007JP07733

PATIENT
  Age: 58 Year
  Sex: Male
  Weight: 57 kg

DRUGS (9)
  1. FUNGUARD [Suspect]
     Indication: WHITE BLOOD CELL COUNT DECREASED
     Dosage: 150 MG/DAY
     Route: 042
     Dates: start: 20070423
  2. GLEEVEC [Suspect]
     Indication: ACUTE LYMPHOCYTIC LEUKAEMIA
     Dosage: 600 MG/D
     Route: 048
     Dates: start: 20070501, end: 20070503
  3. MEROPEN [Suspect]
     Indication: SEPSIS
     Dosage: 2 G/DAY
     Route: 042
     Dates: start: 20070503, end: 20070504
  4. LOXONIN [Suspect]
     Indication: PYREXIA
     Dosage: 60 MG/DAY
     Route: 048
     Dates: start: 20070503, end: 20070503
  5. NORVASC [Concomitant]
     Indication: HYPERTENSION
     Dosage: 5 MG/DAY
     Route: 048
     Dates: start: 20070428, end: 20070503
  6. CYLOCIDE [Concomitant]
     Indication: ACUTE LYMPHOCYTIC LEUKAEMIA
     Dosage: 150 MG/DAY
     Route: 042
     Dates: start: 20070420, end: 20070424
  7. IDARUBICIN HCL [Concomitant]
     Indication: ACUTE LYMPHOCYTIC LEUKAEMIA
     Dosage: 18 MG/DAY
     Route: 042
     Dates: start: 20070420, end: 20070422
  8. VANCOMYCIN HCL [Concomitant]
     Indication: SEPSIS
     Dosage: 1 G/DAY
     Route: 042
     Dates: start: 20070504, end: 20070504
  9. PREDNISOLONE [Concomitant]
     Indication: ACUTE LYMPHOCYTIC LEUKAEMIA
     Dosage: 100 MG/DAY
     Route: 048
     Dates: start: 20070423, end: 20070503

REACTIONS (27)
  - ACUTE LYMPHOCYTIC LEUKAEMIA [None]
  - ACUTE RESPIRATORY FAILURE [None]
  - ALANINE AMINOTRANSFERASE INCREASED [None]
  - ASPARTATE AMINOTRANSFERASE INCREASED [None]
  - BLISTER [None]
  - BLOOD CREATININE INCREASED [None]
  - BLOOD LACTATE DEHYDROGENASE INCREASED [None]
  - BLOOD PRESSURE DECREASED [None]
  - BLOOD UREA INCREASED [None]
  - BONE MARROW FAILURE [None]
  - GAMMA-GLUTAMYLTRANSFERASE INCREASED [None]
  - GENERALISED ERYTHEMA [None]
  - HEPATOTOXICITY [None]
  - IATROGENIC INFECTION [None]
  - LIVER DISORDER [None]
  - MALAISE [None]
  - METHICILLIN-RESISTANT STAPHYLOCOCCAL AUREUS TEST POSITIVE [None]
  - OLIGURIA [None]
  - PNEUMONIA [None]
  - PYREXIA [None]
  - RASH [None]
  - RENAL DISORDER [None]
  - SEPSIS [None]
  - SHOCK [None]
  - URTICARIA GENERALISED [None]
  - VOMITING [None]
  - WHITE BLOOD CELL COUNT DECREASED [None]
